FAERS Safety Report 6985747-5 (Version None)
Quarter: 2010Q3

REPORT INFORMATION
  Report Type: 
  Country: None (occurrence: None)
  Receive Date: 20100915
  Receipt Date: 20100909
  Transmission Date: 20110219
  Serious: Yes (Other)
  Sender: FDA-Public Use
  Company Number: US-WYE-H17447410

PATIENT
  Age: 66 Year
  Sex: Female
  Weight: 86.26 kg

DRUGS (9)
  1. ADVIL LIQUI-GELS [Suspect]
     Indication: ARTHRITIS
     Dosage: 1 TO 2 LIQUI-GELS AS NEEDED
     Route: 048
     Dates: start: 20090901, end: 20100801
  2. PLAQUENIL [Suspect]
     Dosage: UNKNOWN
     Route: 065
  3. TRAZODONE HCL [Suspect]
     Dosage: UNKNOWN
     Route: 065
  4. OS-CAL + D [Concomitant]
  5. GABAPENTIN [Suspect]
     Dosage: UNKNOWN
     Route: 065
  6. AMLODIPINE [Suspect]
     Dosage: UNKNOWN
     Route: 065
  7. FISH OIL [Concomitant]
  8. CYMBALTA [Suspect]
     Dosage: UNKNOWN
     Route: 065
  9. ATENOLOL [Suspect]
     Dosage: UNKNOWN
     Route: 065

REACTIONS (2)
  - RENAL FAILURE CHRONIC [None]
  - RENAL IMPAIRMENT [None]
